FAERS Safety Report 5864115-3 (Version None)
Quarter: 2008Q3

REPORT INFORMATION
  Report Type: 
  Country: None (occurrence: None)
  Receive Date: 20080829
  Receipt Date: 20080821
  Transmission Date: 20090109
  Serious: Yes (Other)
  Sender: FDA-Public Use
  Company Number: US-ROCHE-477307

PATIENT
  Sex: Female
  Weight: 49 kg

DRUGS (9)
  1. ACCUTANE [Suspect]
     Indication: ACNE
     Dosage: STRENGTH REPORTED AS 10 MG - 60 MG. DOSAGE  REPORTED AS VARIABLE.
     Route: 048
     Dates: start: 20001111, end: 20010401
  2. ACCUTANE [Suspect]
     Dosage: STRENGTH + FORMULATION REPORTED AS: 50 MG; DOSAGE REGIMEN REPORTED AS: DAILY.
     Route: 048
     Dates: start: 20011113, end: 20020415
  3. ACCUTANE [Suspect]
     Dosage: STRENGTH + FORMULATION REPORTED AS: 40 MG; DOSAGE REGIMEN REPORTED AS: DAILY.
     Route: 048
  4. ACCUTANE [Suspect]
     Dosage: STRENGTH + FORMULATION REPORTED AS: 50-60 MG; DOSAGE REGIMEN REPORTED AS: AS DIRECTED.
     Route: 048
     Dates: start: 20020205
  5. ORTHO TRI-CYCLEN LO [Concomitant]
  6. AQUAPHOR [Concomitant]
     Indication: ACNE
     Dates: start: 20001204
  7. CETAPHIL [Concomitant]
     Indication: ACNE
     Dosage: DRUG REPORTED AS CETAPHIL CR W/SPF 15.
     Dates: start: 20001204
  8. DESOXYMETHASONE [Concomitant]
     Dosage: REPORTED AS: DESOXIMETHASONE; DOSAGE REGIMEN REPORTED AS: BID.
     Route: 061
     Dates: start: 20020112
  9. PROTOPIC [Concomitant]
     Dosage: DOSAGE REGIMEN REPORTED AS: BID.
     Route: 061
     Dates: start: 20011110

REACTIONS (21)
  - ABDOMINAL PAIN [None]
  - ARTHRITIS [None]
  - BLOOD CHOLESTEROL INCREASED [None]
  - BLOOD TRIGLYCERIDES INCREASED [None]
  - COLITIS [None]
  - COLITIS ULCERATIVE [None]
  - DIZZINESS [None]
  - DRY SKIN [None]
  - EMOTIONAL DISTRESS [None]
  - FOOT DEFORMITY [None]
  - GAIT DISTURBANCE [None]
  - HEPATIC ENZYME INCREASED [None]
  - INFLAMMATORY BOWEL DISEASE [None]
  - INJURY [None]
  - IRRITABLE BOWEL SYNDROME [None]
  - LIP DRY [None]
  - POLYP [None]
  - PROCTITIS [None]
  - PROCTOCOLITIS [None]
  - RECTAL HAEMORRHAGE [None]
  - TENDONITIS [None]
